FAERS Safety Report 7122460-8 (Version None)
Quarter: 2010Q4

REPORT INFORMATION
  Report Type: 
  Country: None (occurrence: None)
  Receive Date: 20101124
  Receipt Date: 20101118
  Transmission Date: 20110411
  Serious: Yes (Death)
  Sender: FDA-Public Use
  Company Number: FR-MERCK-1011FRA00071

PATIENT
  Age: 75 Year
  Sex: Female

DRUGS (12)
  1. PRIMAXIN [Suspect]
     Route: 042
     Dates: start: 20100903
  2. AMOXICILLIN [Suspect]
     Route: 042
     Dates: start: 20100831, end: 20100929
  3. AMOXICILLIN [Suspect]
     Route: 042
     Dates: start: 20100930, end: 20101006
  4. CEFTRIAXONE SODIUM [Suspect]
     Route: 042
     Dates: start: 20100611
  5. CEFTRIAXONE SODIUM [Suspect]
     Route: 042
     Dates: start: 20100925, end: 20101003
  6. CEFTRIAXONE SODIUM [Suspect]
     Route: 042
     Dates: start: 20101004, end: 20101006
  7. CLAVULANATE POTASSIUM AND TICARCILLIN DISODIUM [Suspect]
     Route: 042
     Dates: start: 20101007, end: 20101007
  8. AMIKACIN SULFATE [Concomitant]
     Route: 065
     Dates: start: 20100903
  9. VANCOMYCIN [Concomitant]
     Route: 065
     Dates: start: 20100612
  10. CIPROFLOXACIN HYDROCHLORIDE [Concomitant]
     Route: 065
     Dates: start: 20100611
  11. OXYGEN [Concomitant]
     Indication: CHRONIC RESPIRATORY FAILURE
     Route: 055
  12. PIPERACILLIN SODIUM AND TAZOBACTAM SODIUM [Concomitant]
     Route: 042
     Dates: start: 20100612

REACTIONS (22)
  - ACUTE RESPIRATORY FAILURE [None]
  - ANEURYSM RUPTURED [None]
  - ASPERGILLUS TEST POSITIVE [None]
  - BACTERAEMIA [None]
  - BRADYCARDIA [None]
  - COMA [None]
  - DIALYSIS [None]
  - DISTURBANCE IN ATTENTION [None]
  - DRUG TOXICITY [None]
  - ENDOCARDITIS ENTEROCOCCAL [None]
  - HAEMOPTYSIS [None]
  - HALLUCINATION [None]
  - HEPARIN-INDUCED THROMBOCYTOPENIA [None]
  - HYPERTONIA [None]
  - LEGIONELLA INFECTION [None]
  - MYCOBACTERIUM AVIUM COMPLEX INFECTION [None]
  - OVERDOSE [None]
  - RENAL FAILURE ACUTE [None]
  - SEPSIS [None]
  - SHOCK [None]
  - STENOTROPHOMONAS INFECTION [None]
  - TREMOR [None]
